FAERS Safety Report 14183004 (Version 1)
Quarter: 2017Q4

REPORT INFORMATION
  Report Type: Report from Study
  Country: None (occurrence: AT)
  Receive Date: 20171113
  Receipt Date: 20171113
  Transmission Date: 20180321
  Serious: Yes (Death)
  Sender: FDA-Public Use
  Company Number: AT-ABBVIE-17K-009-2161679-00

PATIENT
  Sex: Male

DRUGS (1)
  1. DUODOPA [Suspect]
     Active Substance: CARBIDOPA\LEVODOPA
     Indication: PARKINSON^S DISEASE
     Dosage: 16 H THERAPY:??MD: 10 ML??CRD AYTIME: 2.5 ML/H??ED: 1.5 ML
     Route: 050
     Dates: start: 20150114

REACTIONS (1)
  - Pneumonia [Fatal]
